FAERS Safety Report 5086326-X (Version None)
Quarter: 2006Q3

REPORT INFORMATION
  Report Type: 
  Country: None (occurrence: None)
  Receive Date: 20060703
  Receipt Date: 20060303
  Transmission Date: 20061208
  Serious: No
  Sender: FDA-Public Use
  Company Number: 2006S1001949

PATIENT
  Age: 43 Year
  Sex: Male
  Weight: 53.5244 kg

DRUGS (11)
  1. CLOZAPINE [Suspect]
     Indication: AUTISM
     Dosage: SEE IMAGE
     Route: 048
     Dates: start: 20030601, end: 20060305
  2. CLOZAPINE [Suspect]
     Indication: AUTISM
     Dosage: SEE IMAGE
     Route: 048
     Dates: start: 20060306
  3. THIORIDAZINE HCL [Concomitant]
  4. BENZATROPINE [Concomitant]
  5. FLUOXETINE HCL [Concomitant]
  6. VALPROATE SODIUM [Concomitant]
  7. TRAZODONE HCL [Concomitant]
  8. LORAZEPAM [Concomitant]
  9. CAFFEINE/BUTALBITAL/PARACETAMOL [Concomitant]
  10. OLANZAPINE [Concomitant]
  11. DIAZEPAM [Concomitant]

REACTIONS (1)
  - GRANULOCYTOPENIA [None]
